FAERS Safety Report 24126689 (Version 2)
Quarter: 2024Q3

REPORT INFORMATION
  Report Type: Spontaneous
  Country: KW (occurrence: KW)
  Receive Date: 20240723
  Receipt Date: 20240814
  Transmission Date: 20241017
  Serious: Yes (Hospitalization, Disabling)
  Sender: VIFOR
  Company Number: KW-Vifor (International) Inc.-VIT-2024-06268

PATIENT
  Age: 52 Year
  Sex: Male
  Weight: 74 kg

DRUGS (8)
  1. VELTASSA [Suspect]
     Active Substance: PATIROMER
     Indication: Hyperkalaemia
     Dosage: SACHET
     Route: 048
     Dates: start: 20230406, end: 20231203
  2. VELTASSA [Suspect]
     Active Substance: PATIROMER
     Dosage: SACHET
     Route: 048
     Dates: end: 20240702
  3. VELPHORO [Suspect]
     Active Substance: SUCROFERRIC OXYHYDROXIDE
     Indication: Hyperphosphataemia
     Dosage: 1 GM TDS
     Route: 048
     Dates: start: 20240320
  4. RAMIPRIL [Concomitant]
     Active Substance: RAMIPRIL
     Indication: Hypertension
     Route: 048
  5. LERCANIDIPINE HYDROCHLORIDE [Concomitant]
     Active Substance: LERCANIDIPINE HYDROCHLORIDE
     Indication: Hypertension
     Route: 048
  6. APRAZOLE [Concomitant]
     Indication: Hypertension
     Route: 048
  7. LIPILOR [Concomitant]
     Indication: Dyslipidaemia
     Route: 048
  8. PARSABIV [Concomitant]
     Active Substance: ETELCALCETIDE HYDROCHLORIDE
     Indication: Hyperparathyroidism
     Dosage: POST DIALYSIS
     Route: 042

REACTIONS (5)
  - Calcification metastatic [Recovered/Resolved]
  - Hypercalcaemia [Recovered/Resolved]
  - Fungal infection [Unknown]
  - Faeces discoloured [Unknown]
  - Diarrhoea [Recovering/Resolving]

NARRATIVE: CASE EVENT DATE: 20231203
